FAERS Safety Report 15375975 (Version 1)
Quarter: 2018Q3

REPORT INFORMATION
  Report Type: Spontaneous
  Country: US (occurrence: US)
  Receive Date: 20180912
  Receipt Date: 20180912
  Transmission Date: 20181010
  Serious: No
  Sender: FDA-Public Use
  Company Number: US-PFIZER INC-2018367069

PATIENT
  Age: 6 Year
  Sex: Male

DRUGS (1)
  1. GENOTROPIN [Suspect]
     Active Substance: SOMATROPIN
     Dosage: 1 MG, DAILY
     Dates: start: 20180210

REACTIONS (14)
  - Haemoglobin decreased [Unknown]
  - Red cell distribution width increased [Unknown]
  - Red blood cell count decreased [Unknown]
  - Blood potassium decreased [Unknown]
  - Globulins decreased [Unknown]
  - Blood bilirubin decreased [Unknown]
  - Blood iron increased [Unknown]
  - Blood calcium decreased [Unknown]
  - Serum ferritin decreased [Unknown]
  - Mean cell haemoglobin concentration decreased [Unknown]
  - Haematocrit decreased [Unknown]
  - Transferrin saturation increased [Unknown]
  - Mean cell haemoglobin decreased [Unknown]
  - Protein total decreased [Unknown]
